FAERS Safety Report 6110072 (Version 3)
Quarter: 2016Q1

REPORT INFORMATION
  Report Type: Spontaneous
  Country: FR (occurrence: FR)
  Receive Date: 20060818
  Receipt Date: 20160129
  Transmission Date: 20160526
  Serious: Yes (Hospitalization, Other)
  Sender: FDA-Public Use
  Company Number: FR-BRISTOL-MYERS SQUIBB COMPANY-13155825

PATIENT
  Age: 38 Year
  Sex: Female

DRUGS (3)
  1. LYSANXIA [Suspect]
     Active Substance: PRAZEPAM
     Indication: ANXIETY
     Dosage: UNK
     Route: 048
     Dates: start: 2003
  2. AMISULPRIDE [Suspect]
     Active Substance: AMISULPRIDE
     Indication: PSYCHOTIC DISORDER
     Dosage: 600 MG, QD
     Route: 048
     Dates: start: 2003
  3. ABILIFY [Suspect]
     Active Substance: ARIPIPRAZOLE
     Indication: PSYCHOTIC DISORDER
     Dosage: 10 MG, QD
     Route: 048
     Dates: start: 200506

REACTIONS (5)
  - Caesarean section [Recovered/Resolved]
  - Pregnancy [Recovered/Resolved]
  - Normal newborn [Unknown]
  - Gestational hypertension [Unknown]
  - Agitation [Unknown]

NARRATIVE: CASE EVENT DATE: 2006
